FAERS Safety Report 8107092-7 (Version None)
Quarter: 2012Q1

REPORT INFORMATION
  Report Type: 
  Country: None (occurrence: None)
  Receive Date: 20120202
  Receipt Date: 20120130
  Transmission Date: 20120608
  Serious: No
  Sender: FDA-Public Use
  Company Number: US-BAYER-2012-010155

PATIENT
  Age: 76 Year
  Sex: Male
  Weight: 77 kg

DRUGS (6)
  1. REQUIP [Concomitant]
  2. VITAMIN D [Concomitant]
  3. LOSARTAN POTASSIUM [Concomitant]
  4. ACETYLSALICYLIC ACID SRT [Concomitant]
     Dosage: 81 MG, UNK
  5. ALEVE (CAPLET) [Suspect]
     Indication: PAIN IN EXTREMITY
     Dosage: 1 DF, PRN
     Route: 048
     Dates: start: 20120124, end: 20120128
  6. GABAPENTIN [Concomitant]

REACTIONS (1)
  - RESTLESS LEGS SYNDROME [None]
